FAERS Safety Report 11419545 (Version 1)
Quarter: 2015Q3

REPORT INFORMATION
  Report Type: Spontaneous
  Country: FR (occurrence: FR)
  Receive Date: 20150826
  Receipt Date: 20150826
  Transmission Date: 20151125
  Serious: Yes (Life-Threatening, Hospitalization)
  Sender: FDA-Public Use
  Company Number: FR-NOVOPROD-461058

PATIENT
  Age: 65 Year
  Sex: Male

DRUGS (10)
  1. APROVEL [Concomitant]
     Active Substance: IRBESARTAN
  2. VICTOZA [Suspect]
     Active Substance: LIRAGLUTIDE
     Indication: TYPE 2 DIABETES MELLITUS
     Dosage: 1.6 MG, QD
     Route: 058
     Dates: start: 201202, end: 20150730
  3. METFORMINE [Concomitant]
     Active Substance: METFORMIN HYDROCHLORIDE
  4. KARDEGIC [Concomitant]
     Active Substance: ASPIRIN LYSINE
  5. LASILIX                            /00032601/ [Concomitant]
     Active Substance: FUROSEMIDE
  6. CRESTOR [Concomitant]
     Active Substance: ROSUVASTATIN CALCIUM
  7. LANTUS [Concomitant]
     Active Substance: INSULIN GLARGINE
  8. AMAREL [Concomitant]
     Active Substance: GLIMEPIRIDE
  9. IPERTEN [Concomitant]
     Active Substance: MANIDIPINE
  10. ALLOPURINOL. [Concomitant]
     Active Substance: ALLOPURINOL

REACTIONS (1)
  - Pancreatic carcinoma [Not Recovered/Not Resolved]

NARRATIVE: CASE EVENT DATE: 201508
